FAERS Safety Report 9731576 (Version 1)
Quarter: 2013Q4

REPORT INFORMATION
  Report Type: Spontaneous
  Country: US (occurrence: None)
  Receive Date: 20131204
  Receipt Date: 20131204
  Transmission Date: 20140711
  Serious: Yes (Other)
  Sender: FDA-Public Use
  Company Number: None

PATIENT
  Age: 67 Year
  Sex: Female
  Weight: 70.31 kg

DRUGS (1)
  1. MUCINEX DM MAX STRENGTH [Suspect]
     Indication: RALES

REACTIONS (4)
  - Dehydration [None]
  - Dizziness [None]
  - Vertigo [None]
  - Nausea [None]
